FAERS Safety Report 9379721 (Version 1)
Quarter: 2013Q2

REPORT INFORMATION
  Report Type: Spontaneous
  Country: GB (occurrence: None)
  Receive Date: 20130627
  Receipt Date: 20130627
  Transmission Date: 20140414
  Serious: Yes (Other)
  Sender: FDA-Public Use
  Company Number: GER/UKI/13/0030191

PATIENT
  Age: 62 Year
  Sex: Female
  Weight: 50 kg

DRUGS (10)
  1. AMLODIPINE (AMLODIPINE) [Suspect]
     Indication: PRODUCT USED FOR UNKNOWN INDICATION
  2. SIMVASTATIN (SIMVASTATIN) [Suspect]
     Indication: PRODUCT USED FOR UNKNOWN INDICATION
  3. CALCIUM (CALCIUM) [Concomitant]
  4. CLONAZEPAM (CLONAZEPAM) [Concomitant]
  5. COD LIVER OIL (COD-LIVER OIL) [Concomitant]
  6. ERGOCALCIFEROL (ERGOCALCIFEROL) [Concomitant]
  7. EVENING PRIMROSE (OENOTHERA BIENNIS OIL) [Concomitant]
  8. EZETIMIBE (EZETIMIBE) [Concomitant]
  9. REMEDEINE (PARAMOL -118) [Concomitant]
  10. VITAMINS NOS (VITAMINS NOS) [Concomitant]

REACTIONS (2)
  - Peroneal nerve palsy [None]
  - Fall [None]
